FAERS Safety Report 14195208 (Version 1)
Quarter: 2017Q4

REPORT INFORMATION
  Report Type: Spontaneous
  Country: US (occurrence: US)
  Receive Date: 20171116
  Receipt Date: 20171116
  Transmission Date: 20180321
  Serious: No
  Sender: FDA-Public Use
  Company Number: US-MISSION PHARMACAL COMPANY-2034298

PATIENT
  Age: 65 Year
  Sex: Male

DRUGS (1)
  1. THIOLA [Suspect]
     Active Substance: TIOPRONIN
     Indication: NEPHROLITHIASIS
     Route: 065
     Dates: start: 20150911

REACTIONS (4)
  - Nephrolithiasis [None]
  - Osteoarthritis [None]
  - Rheumatoid arthritis [Unknown]
  - Drug ineffective [Unknown]
